FAERS Safety Report 11180293 (Version 2)
Quarter: 2015Q2

REPORT INFORMATION
  Report Type: Report from Study
  Country: CA (occurrence: None)
  Receive Date: 20150609
  Receipt Date: 20150622
  Transmission Date: 20150821
  Serious: Yes (Hospitalization)
  Sender: FDA-Public Use
  Company Number: 2015FE01779

PATIENT
  Age: 67 Year
  Sex: Male

DRUGS (6)
  1. VITAMIN D (ERGOCALCIFEROL) [Concomitant]
     Active Substance: ERGOCALCIFEROL
  2. CALCIUM (CALCIUM) [Concomitant]
     Active Substance: CALCIUM
  3. CODEINE [Concomitant]
     Active Substance: CODEINE
  4. PREDNISONE. [Concomitant]
     Active Substance: PREDNISONE
  5. DEGARELIX (DEGARELIX) POWDER AND SOLVENT FOR SOLUTION FOR INJECTION [Suspect]
     Active Substance: DEGARELIX
     Indication: PROSTATE CANCER
     Route: 058
     Dates: start: 20130101
  6. XTANDI [Concomitant]
     Active Substance: ENZALUTAMIDE

REACTIONS (5)
  - Back pain [None]
  - Pelvic pain [None]
  - Prostate cancer [None]
  - General physical health deterioration [None]
  - Arthralgia [None]
